FAERS Safety Report 25369194 (Version 1)
Quarter: 2025Q2

REPORT INFORMATION
  Report Type: Spontaneous
  Country: US (occurrence: None)
  Receive Date: 20250524
  Receipt Date: 20250524
  Transmission Date: 20250716
  Serious: Yes (Disabling)
  Sender: FDA-CTU
  Company Number: None

PATIENT
  Age: 48 Year
  Sex: Female
  Weight: 61.23 kg

DRUGS (1)
  1. DEVICE [Suspect]
     Active Substance: DEVICE

REACTIONS (1)
  - Skin mass [None]

NARRATIVE: CASE EVENT DATE: 20230101
